FAERS Safety Report 7134147 (Version 4)
Quarter: 2012Q4

REPORT INFORMATION
  Report Type: 
  Country: FR (occurrence: FR)
  Receive Date: 20090929
  Receipt Date: 20120906
  Transmission Date: 20130627
  Serious: Yes (Hospitalization)
  Sender: FDA-Public Use
  Company Number: FR-MERCK-0909FRA00050

PATIENT
  Age: 61 None

DRUGS (22)
  1. EZETROL [Suspect]
     Route: 048
     Dates: start: 2005, end: 20080724
  2. EZETROL [Suspect]
     Route: 048
     Dates: start: 20081223, end: 20090217
  3. CLOPIDOGREL BISULFATE [Concomitant]
     Dosage: 1 UNK, qd
     Route: 048
     Dates: start: 200808, end: 20090217
  4. CLOPIDOGREL BISULFATE [Concomitant]
     Route: 048
     Dates: start: 200903
  5. CLOPIDOGREL BISULFATE [Concomitant]
     Route: 048
     Dates: end: 20080724
  6. ALLOPURINOL [Suspect]
     Route: 048
     Dates: start: 2005, end: 20080724
  7. ALLOPURINOL [Suspect]
     Route: 048
     Dates: start: 20081223, end: 20090217
  8. ALLOPURINOL [Suspect]
     Route: 048
     Dates: start: 200906, end: 20090706
  9. TRIMETAZIDINE HYDROCHLORIDE [Concomitant]
     Route: 048
     Dates: start: 200808, end: 20090217
  10. TRIMETAZIDINE HYDROCHLORIDE [Concomitant]
     Route: 048
     Dates: start: 20090223
  11. TRIMETAZIDINE HYDROCHLORIDE [Concomitant]
     Route: 048
     Dates: end: 20080724
  12. PYGEUM [Concomitant]
     Route: 048
     Dates: start: 20081223, end: 20090217
  13. PYGEUM [Concomitant]
     Route: 048
     Dates: start: 200903
  14. PYGEUM [Concomitant]
     Route: 048
     Dates: end: 20080724
  15. SAW PALMETTO [Concomitant]
     Route: 048
     Dates: start: 20081223, end: 20090217
  16. SAW PALMETTO [Concomitant]
     Route: 048
     Dates: start: 200903
  17. SAW PALMETTO [Concomitant]
     Route: 048
     Dates: end: 20080724
  18. METOPROLOL TARTRATE [Concomitant]
     Route: 048
     Dates: start: 200808, end: 20090217
  19. METOPROLOL TARTRATE [Concomitant]
     Route: 048
     Dates: start: 200903
  20. METOPROLOL TARTRATE [Concomitant]
     Route: 048
     Dates: end: 20080724
  21. LEVOCETIRIZINE DIHYDROCHLORIDE [Concomitant]
     Dates: end: 20080724
  22. VALACYCLOVIR HYDROCHLORIDE [Concomitant]
     Dates: end: 20080724

REACTIONS (2)
  - Thrombocytopenia [Recovered/Resolved]
  - Purpura [Unknown]
